FAERS Safety Report 6501581-4 (Version None)
Quarter: 2009Q4

REPORT INFORMATION
  Report Type: 
  Country: None (occurrence: None)
  Receive Date: 20091127
  Receipt Date: 20090306
  Transmission Date: 20100525
  Serious: Yes (Disabling)
  Sender: FDA-Public Use
  Company Number: WAES 0708USA00847

PATIENT
  Age: 77 Year
  Sex: Female

DRUGS (1)
  1. FOSAMAX [Suspect]
     Indication: OSTEOPOROSIS PROPHYLAXIS
     Dosage: 70 MG/WKY/PO
     Route: 048
     Dates: start: 20000101, end: 20050831

REACTIONS (11)
  - ANXIETY [None]
  - BLOOD CHOLESTEROL INCREASED [None]
  - DEPRESSION [None]
  - FALL [None]
  - GINGIVAL SWELLING [None]
  - GINGIVITIS [None]
  - HYPERTENSION [None]
  - OSTEONECROSIS [None]
  - RENAL IMPAIRMENT [None]
  - RESORPTION BONE INCREASED [None]
  - RIB FRACTURE [None]
